FAERS Safety Report 22530983 (Version 1)
Quarter: 2023Q2

REPORT INFORMATION
  Report Type: Spontaneous
  Country: FR (occurrence: FR)
  Receive Date: 20230607
  Receipt Date: 20230607
  Transmission Date: 20230721
  Serious: Yes (Hospitalization)
  Sender: FDA-Public Use
  Company Number: FR-AFSSAPS-AVBX2023000128

PATIENT
  Age: 7 Year
  Sex: Male
  Weight: 33 kg

DRUGS (1)
  1. MORPHINE [Suspect]
     Active Substance: MORPHINE
     Indication: Accidental poisoning
     Dosage: UNK
     Route: 065
     Dates: start: 2023

REACTIONS (1)
  - Accidental poisoning [Recovered/Resolved]

NARRATIVE: CASE EVENT DATE: 20230214
